FAERS Safety Report 4583213-8 (Version None)
Quarter: 2005Q1

REPORT INFORMATION
  Report Type: 
  Country: None (occurrence: None)
  Receive Date: 20050125
  Receipt Date: 20040907
  Transmission Date: 20050727
  Serious: No
  Sender: FDA-Public Use
  Company Number: USA030844512

PATIENT
  Age: 81 Year
  Sex: Female
  Weight: 51 kg

DRUGS (12)
  1. FORTEO [Suspect]
     Indication: OSTEOPOROSIS
     Dates: start: 20030201, end: 20030101
  2. COZAAR [Concomitant]
  3. QUININE SULFATE [Concomitant]
  4. OXYCONTIN [Concomitant]
  5. VITAMINS [Concomitant]
  6. KLONOPIN [Concomitant]
  7. SOMA [Concomitant]
  8. LEVOXYL [Concomitant]
  9. PROMETRIUM [Concomitant]
  10. CLIMARA [Concomitant]
  11. CALCIUM GLUCONATE [Concomitant]
  12. MAGNESIUM [Concomitant]

REACTIONS (7)
  - BACK PAIN [None]
  - CYSTITIS [None]
  - DYSURIA [None]
  - HEART RATE INCREASED [None]
  - MUSCLE SPASMS [None]
  - MUSCULAR WEAKNESS [None]
  - PAIN IN EXTREMITY [None]
